FAERS Safety Report 9649238 (Version 21)
Quarter: 2016Q3

REPORT INFORMATION
  Report Type: Spontaneous
  Country: US (occurrence: US)
  Receive Date: 20131028
  Receipt Date: 20160811
  Transmission Date: 20161109
  Serious: Yes (Death, Hospitalization, Other)
  Sender: FDA-Public Use
  Company Number: US-GLAXOSMITHKLINE-A1043151A

PATIENT
  Age: 43 Year
  Sex: Female

DRUGS (18)
  1. FLOLAN [Suspect]
     Active Substance: EPOPROSTENOL SODIUM
     Dosage: 30 NG/KG/MIN CONTINUOUS
  2. FLOLAN [Suspect]
     Active Substance: EPOPROSTENOL SODIUM
     Dosage: 30 NG/KG/MIN CONTINUOUSLY; CONCENTRATION: 45,000 NG/ML; PUMP RATE: 91 ML/DAY; VIAL STRENGTH: 1.5 MG
     Route: 042
     Dates: start: 20130731
  3. FLOLAN [Suspect]
     Active Substance: EPOPROSTENOL SODIUM
     Dosage: UNK
     Dates: start: 20130725
  4. FLOLAN [Suspect]
     Active Substance: EPOPROSTENOL SODIUM
     Dosage: 30 NG/KG/MIN, CO
     Route: 042
  5. FLOLAN [Suspect]
     Active Substance: EPOPROSTENOL SODIUM
     Indication: PULMONARY HYPERTENSION
     Dosage: 12 NG/KG/MIN, CONCENTRATION 30,000 NG/ML, VIAL STRENGTH 1.5 MG14 NG/KG/MIN18 NG/KG/MIN, PUMP RA[...]
     Route: 042
     Dates: start: 20130725
  6. FLOLAN [Suspect]
     Active Substance: EPOPROSTENOL SODIUM
     Dosage: 30 NG/KG/MIN CONTINUOUS
  7. REVATIO [Concomitant]
     Active Substance: SILDENAFIL CITRATE
     Indication: PRODUCT USED FOR UNKNOWN INDICATION
     Dosage: UNK
  8. FLOLAN [Suspect]
     Active Substance: EPOPROSTENOL SODIUM
     Indication: PULMONARY ARTERIAL HYPERTENSION
     Dosage: UNK
     Dates: start: 20130725
  9. FLOLAN [Suspect]
     Active Substance: EPOPROSTENOL SODIUM
     Dosage: 30 NG/KG/MIN CONTINUOUSLY
  10. FLOLAN [Suspect]
     Active Substance: EPOPROSTENOL SODIUM
     Dosage: 22 NG/KG/MIN CONTINUOUS
     Route: 042
  11. FLOLAN [Suspect]
     Active Substance: EPOPROSTENOL SODIUM
     Dosage: VIAL STRENGTH 1.5 MG, DOSE 30 NG/KG/MIN, CONCENTARTION 45 NG/ML, PUMP RATE 91 ML/DAY
     Route: 042
  12. FLOLAN [Suspect]
     Active Substance: EPOPROSTENOL SODIUM
     Dosage: 30 NG/KG/MIN CONTINUOUSLY;45,000 NG/ML CONCENTRATION; 91 ML/DAY;VIAL STRENGTH 1.5 MG
     Route: 042
  13. FLOLAN [Suspect]
     Active Substance: EPOPROSTENOL SODIUM
     Indication: COR PULMONALE CHRONIC
     Dosage: UNK
     Dates: start: 20130725
  14. FLOLAN [Suspect]
     Active Substance: EPOPROSTENOL SODIUM
     Dosage: 30 NG/KG/MIN CONTINUOUSLY; CONCENTRATION: 45,000 NG/ML; PUMP RATE: 91 ML/DAY; VIAL STRENGTH: 1.5 MG
     Route: 042
  15. FLOLAN [Suspect]
     Active Substance: EPOPROSTENOL SODIUM
     Dosage: 30 NG/KG/MIN CONTINUOUS,CONCENTRATION OF 45,000 NG/ML, PUMP RATE 91 ML/DAY AND 1.5 VIAL STRENGTH
  16. FLOLAN [Suspect]
     Active Substance: EPOPROSTENOL SODIUM
     Dosage: 30 NG/KG/MIN, CO
     Dates: start: 20130731
  17. FLOLAN [Suspect]
     Active Substance: EPOPROSTENOL SODIUM
     Dosage: 30 NG/KG/MIN CONTINUOUSLY
  18. FLOLAN [Suspect]
     Active Substance: EPOPROSTENOL SODIUM

REACTIONS (35)
  - Sinusitis [Unknown]
  - Ill-defined disorder [Unknown]
  - Headache [Unknown]
  - Pleural effusion [Unknown]
  - Tachycardia [Unknown]
  - Nausea [Unknown]
  - Wheezing [Unknown]
  - Fluid overload [Unknown]
  - Catheter placement [Unknown]
  - Somnolence [Unknown]
  - Rhinorrhoea [Unknown]
  - Vomiting [Unknown]
  - Catheter site discharge [Unknown]
  - Nasopharyngitis [Unknown]
  - Death [Fatal]
  - Spinal fracture [Unknown]
  - Anaemia [Unknown]
  - Bronchitis [Unknown]
  - Fatigue [Unknown]
  - Infection [Unknown]
  - Pulmonary arterial hypertension [Unknown]
  - Pneumonia [Unknown]
  - Transfusion [Unknown]
  - Scleroderma [Unknown]
  - Cognitive disorder [Unknown]
  - Renal impairment [Unknown]
  - Respiratory tract infection [Unknown]
  - Eating disorder [Unknown]
  - Administration site erythema [Unknown]
  - Chest pain [Unknown]
  - Fall [Unknown]
  - Diarrhoea [Unknown]
  - Dyspnoea [Unknown]
  - Cardiac failure congestive [Unknown]
  - Hospitalisation [Unknown]

NARRATIVE: CASE EVENT DATE: 2014
